FAERS Safety Report 8606500 (Version 4)
Quarter: 2013Q1

REPORT INFORMATION
  Report Type: Spontaneous
  Country: US (occurrence: US)
  Receive Date: 20120608
  Receipt Date: 20130107
  Transmission Date: 20140127
  Serious: No
  Sender: FDA-Public Use
  Company Number: US-ASTRAZENECA-2011SE59411

PATIENT
  Age: 75 Year
  Sex: Female

DRUGS (1)
  1. PULMICORT RESPULES [Suspect]
     Route: 055

REACTIONS (4)
  - Dementia [Unknown]
  - Hiccups [Unknown]
  - Amnesia [Unknown]
  - Off label use [Unknown]
